FAERS Safety Report 7384880-6 (Version None)
Quarter: 2011Q1

REPORT INFORMATION
  Report Type: 
  Country: None (occurrence: None)
  Receive Date: 20110330
  Receipt Date: 20110321
  Transmission Date: 20110831
  Serious: Yes (Hospitalization, Other)
  Sender: FDA-Public Use
  Company Number: US-ASTRAZENECA-2011SE05298

PATIENT
  Age: 52 Year
  Sex: Female
  Weight: 68.5 kg

DRUGS (25)
  1. SEROQUEL [Suspect]
     Route: 048
     Dates: start: 20080620
  2. TRAZODIL [Concomitant]
  3. DIAZEPAM [Concomitant]
  4. WELLBUTRIN SR [Concomitant]
  5. AMBIEN [Concomitant]
  6. SEROQUEL [Suspect]
     Route: 048
     Dates: start: 20100423
  7. NEXIUM [Concomitant]
  8. LITHIUM [Concomitant]
  9. PLAVIX [Concomitant]
  10. ELAVIL [Concomitant]
  11. WELLBUTRIN SR [Concomitant]
  12. BUSPAR [Concomitant]
  13. ELAVIL [Concomitant]
  14. CELEXA [Concomitant]
  15. SEROQUEL [Suspect]
     Route: 048
     Dates: start: 20100226
  16. DIAZEPAM [Concomitant]
  17. ELAVIL [Concomitant]
  18. ELAVIL [Concomitant]
  19. BENADRYL [Concomitant]
  20. SEROQUEL [Suspect]
     Route: 048
     Dates: start: 20080702, end: 20080708
  21. TEVETOL [Concomitant]
  22. LITHIUM [Concomitant]
  23. CELEXA [Concomitant]
  24. SEROQUEL [Suspect]
     Route: 048
  25. BUSPAR [Concomitant]

REACTIONS (11)
  - HALLUCINATION, VISUAL [None]
  - SUICIDAL IDEATION [None]
  - INSOMNIA [None]
  - HYPERPHAGIA [None]
  - CRYING [None]
  - BIPOLAR II DISORDER [None]
  - ARACHNOPHOBIA [None]
  - DEPRESSED MOOD [None]
  - SURGERY [None]
  - VISION BLURRED [None]
  - BIPOLAR I DISORDER [None]
